FAERS Safety Report 15655256 (Version 1)
Quarter: 2018Q4

REPORT INFORMATION
  Report Type: Report from Study
  Country: US (occurrence: US)
  Receive Date: 20181126
  Receipt Date: 20181126
  Transmission Date: 20190205
  Serious: No
  Sender: FDA-Public Use
  Company Number: PHEH2018US049070

PATIENT
  Sex: Male
  Weight: 105.21 kg

DRUGS (2)
  1. LOSARTAN AND HYDROCHLOROTHIAZIDE [Suspect]
     Active Substance: HYDROCHLOROTHIAZIDE\LOSARTAN POTASSIUM
     Indication: HYPERTENSION
     Dosage: 25 MG, QD
     Route: 048
     Dates: start: 20130101
  2. LOSARTAN AND HYDROCHLOROTHIAZIDE [Suspect]
     Active Substance: HYDROCHLOROTHIAZIDE\LOSARTAN POTASSIUM
     Dosage: 100 MG, UNK
     Route: 048

REACTIONS (15)
  - Dizziness [Unknown]
  - Anxiety [Unknown]
  - Oropharyngeal pain [Unknown]
  - Liver disorder [Unknown]
  - Muscle spasms [Unknown]
  - Urticaria [Unknown]
  - Confusional state [Unknown]
  - Rash [Unknown]
  - Poor peripheral circulation [Unknown]
  - Renal pain [Unknown]
  - Muscular weakness [Unknown]
  - Hypoaesthesia [Unknown]
  - Enzyme level increased [Unknown]
  - Stomatitis [Unknown]
  - Vision blurred [Unknown]
